FAERS Safety Report 11189193 (Version 1)
Quarter: 2015Q2

REPORT INFORMATION
  Report Type: Spontaneous
  Country: US (occurrence: US)
  Receive Date: 20150615
  Receipt Date: 20150615
  Transmission Date: 20150821
  Serious: No
  Sender: FDA-Public Use
  Company Number: US-DSJP-DSU-2015-108647

PATIENT
  Age: 84 Year
  Sex: Female
  Weight: 62.59 kg

DRUGS (2)
  1. BENICAR [Suspect]
     Active Substance: OLMESARTAN MEDOXOMIL
     Indication: HYPERTENSION
     Dosage: 20 MG, UNK
     Route: 048
     Dates: start: 201503, end: 201503
  2. BENICAR [Suspect]
     Active Substance: OLMESARTAN MEDOXOMIL
     Dosage: 1/2 OF 20 MG TABLET, UNK
     Route: 048
     Dates: start: 201503

REACTIONS (3)
  - Off label use [Unknown]
  - Secretion discharge [Unknown]
  - Hypotension [Unknown]

NARRATIVE: CASE EVENT DATE: 201503
